FAERS Safety Report 20476419 (Version 3)
Quarter: 2022Q2

REPORT INFORMATION
  Report Type: Spontaneous
  Country: None (occurrence: IT)
  Receive Date: 20220215
  Receipt Date: 20220519
  Transmission Date: 20220721
  Serious: No
  Sender: FDA-Public Use
  Company Number: IT-HILL DERMACEUTICALS, INC.-2125910

PATIENT
  Sex: Female

DRUGS (2)
  1. FLUOROURACIL [Suspect]
     Active Substance: FLUOROURACIL
     Route: 061
  2. TOLAK [Suspect]
     Active Substance: FLUOROURACIL

REACTIONS (2)
  - Scar [Recovered/Resolved]
  - Adverse event [Recovered/Resolved]
